FAERS Safety Report 4749903-9 (Version None)
Quarter: 2005Q3

REPORT INFORMATION
  Report Type: 
  Country: None (occurrence: None)
  Receive Date: 20050822
  Receipt Date: 20050809
  Transmission Date: 20060218
  Serious: Yes (Hospitalization, Other)
  Sender: FDA-Public Use
  Company Number: 2005050698

PATIENT
  Age: 65 Year
  Sex: Male

DRUGS (8)
  1. LIPITOR [Suspect]
     Indication: DYSLIPIDAEMIA
     Dosage: 80 MG (40 MG, 2 IN 1 D), ORAL
     Route: 048
     Dates: start: 20041001
  2. CARDURA XL [Suspect]
     Indication: BENIGN PROSTATIC HYPERPLASIA
     Dosage: 8 MG (4 MG, DAILY), ORAL
     Route: 048
     Dates: start: 19991001
  3. CAPOTEN [Concomitant]
  4. SUSTRATE (PROPATYLNITRATE) [Concomitant]
  5. SOMALGIN (ACETYLSALICYLIC ACID, ALUMINIUM GLYCINATE, MAGNESIUM CARBONA [Concomitant]
  6. CLOPIDOGREL BISULFATE [Concomitant]
  7. ALDACTONE [Concomitant]
  8. ZOLADEX [Concomitant]

REACTIONS (5)
  - DYSLIPIDAEMIA [None]
  - MYOCARDIAL INFARCTION [None]
  - PROSTATE CANCER [None]
  - STRESS [None]
  - THROMBOSIS IN DEVICE [None]
